FAERS Safety Report 12194077 (Version 2)
Quarter: 2016Q1

REPORT INFORMATION
  Report Type: Spontaneous
  Country: KR (occurrence: KR)
  Receive Date: 20160321
  Receipt Date: 20160324
  Transmission Date: 20160526
  Serious: Yes (Death, Hospitalization, Other)
  Sender: FDA-Public Use
  Company Number: KR-ACTELION-A-CH2016-132968

PATIENT
  Age: 46 Year
  Sex: Female
  Weight: 49 kg

DRUGS (4)
  1. FUROSEMIDE. [Concomitant]
     Active Substance: FUROSEMIDE
     Indication: PULMONARY ARTERIAL HYPERTENSION
     Dosage: 20 UNK, UNK
     Route: 048
     Dates: start: 20151111, end: 20160310
  2. TRACLEER [Suspect]
     Active Substance: BOSENTAN
     Indication: PULMONARY ARTERIAL HYPERTENSION
     Dosage: 125 MG, UNK
     Route: 048
     Dates: start: 20151112, end: 20160310
  3. FEROBA [Concomitant]
     Active Substance: FERROUS SULFATE\PROTEASE
     Indication: IRON DEFICIENCY ANAEMIA
     Dosage: 160 MG, UNK
     Route: 048
     Dates: start: 20151119, end: 20160310
  4. SPIROZIDE [Concomitant]
     Indication: PULMONARY ARTERIAL HYPERTENSION
     Dosage: UNK
     Route: 048
     Dates: start: 20060222, end: 20160310

REACTIONS (14)
  - Asthenia [Fatal]
  - Headache [Unknown]
  - Pulmonary arterial hypertension [Fatal]
  - Dyspnoea [Fatal]
  - Blood bilirubin increased [Unknown]
  - Gamma-glutamyltransferase increased [Unknown]
  - Oxygen saturation decreased [Fatal]
  - Jaundice [Unknown]
  - Ocular icterus [Unknown]
  - Alanine aminotransferase increased [Unknown]
  - Aspartate aminotransferase increased [Unknown]
  - Pyrexia [Unknown]
  - Liver function test abnormal [Unknown]
  - Vomiting [Unknown]

NARRATIVE: CASE EVENT DATE: 20160310
